APPROVED DRUG PRODUCT: PROCHLORPERAZINE MALEATE
Active Ingredient: PROCHLORPERAZINE MALEATE
Strength: EQ 10MG BASE
Dosage Form/Route: TABLET;ORAL
Application: A216495 | Product #002 | TE Code: AB
Applicant: ZYDUS LIFESCIENCES GLOBAL FZE
Approved: Aug 8, 2022 | RLD: No | RS: No | Type: RX